FAERS Safety Report 19070792 (Version 1)
Quarter: 2021Q1

REPORT INFORMATION
  Report Type: Spontaneous
  Country: FR (occurrence: FR)
  Receive Date: 20210330
  Receipt Date: 20210330
  Transmission Date: 20210420
  Serious: Yes (Death, Other)
  Sender: FDA-Public Use
  Company Number: FR-AUROBINDO-AUR-APL-2021-012111

PATIENT
  Age: 61 Year
  Sex: Male

DRUGS (3)
  1. ASPEGIC [ACETYLSALICYLATE LYSINE] [Suspect]
     Active Substance: ASPIRIN DL-LYSINE
     Indication: ANEURYSM REPAIR
     Dosage: 250 MILLIGRAM, ONCE A DAY
     Route: 048
  2. EFIENT [Suspect]
     Active Substance: PRASUGREL HYDROCHLORIDE
     Indication: ANEURYSM REPAIR
     Dosage: 10 MILLIGRAM, ONCE A DAY
     Route: 048
  3. RAMIPRIL. [Suspect]
     Active Substance: RAMIPRIL
     Indication: HYPERTENSION
     Dosage: UNK
     Route: 048

REACTIONS (1)
  - Meningorrhagia [Fatal]

NARRATIVE: CASE EVENT DATE: 20210127
